FAERS Safety Report 5562821-1 (Version None)
Quarter: 2007Q4

REPORT INFORMATION
  Report Type: 
  Country: None (occurrence: None)
  Receive Date: 20071212
  Receipt Date: 20071212
  Transmission Date: 20080405
  Serious: Yes (Hospitalization)
  Sender: FDA-Public Use
  Company Number: None

PATIENT
  Sex: Male
  Weight: 54 kg

DRUGS (8)
  1. SUNITINIB [Suspect]
     Indication: RENAL CANCER METASTATIC
     Dosage: 50 MG DAILY ORAL
     Route: 048
     Dates: start: 20070814, end: 20071022
  2. SYNTHROID [Concomitant]
  3. PEPCID [Concomitant]
  4. MECLIZINE [Concomitant]
  5. COMPAZINE [Concomitant]
  6. ATENOLOL [Concomitant]
  7. PRINIVIL [Concomitant]
  8. FELODIPINE [Concomitant]

REACTIONS (6)
  - ACUTE MYOCARDIAL INFARCTION [None]
  - ANAEMIA [None]
  - DEHYDRATION [None]
  - FATIGUE [None]
  - HAEMATURIA [None]
  - THROMBOCYTOPENIA [None]
